FAERS Safety Report 4414192-1 (Version None)
Quarter: 2004Q3

REPORT INFORMATION
  Report Type: 
  Country: None (occurrence: None)
  Receive Date: 20040803
  Receipt Date: 20040729
  Transmission Date: 20050211
  Serious: Yes (Other)
  Sender: FDA-Public Use
  Company Number: PHBS2004AR10148

PATIENT
  Age: 39 Year
  Sex: Female

DRUGS (2)
  1. ZELMAC [Suspect]
     Indication: IRRITABLE BOWEL SYNDROME
     Dosage: 6 MG, BID
  2. LANSOPRAZOLE [Concomitant]
     Indication: DYSPEPSIA

REACTIONS (2)
  - DYSPEPSIA [None]
  - GASTRITIS EROSIVE [None]
